FAERS Safety Report 4982991-3 (Version None)
Quarter: 2006Q2

REPORT INFORMATION
  Report Type: 
  Country: None (occurrence: None)
  Receive Date: 20060420
  Receipt Date: 20060406
  Transmission Date: 20061013
  Serious: Yes (Hospitalization)
  Sender: FDA-Public Use
  Company Number: 2006048492

PATIENT
  Sex: Female

DRUGS (1)
  1. BEXTRA [Suspect]
     Indication: ILL-DEFINED DISORDER
     Dates: start: 20050729

REACTIONS (1)
  - TRANSIENT ISCHAEMIC ATTACK [None]
